FAERS Safety Report 5911651-7 (Version None)
Quarter: 2008Q4

REPORT INFORMATION
  Report Type: 
  Country: None (occurrence: None)
  Receive Date: 20081003
  Receipt Date: 20080922
  Transmission Date: 20090506
  Serious: Yes (Hospitalization)
  Sender: FDA-Public Use
  Company Number: 2008US002394

PATIENT
  Age: 69 Year
  Sex: Male
  Weight: 96.1 kg

DRUGS (7)
  1. AMEVIVE [Suspect]
     Indication: PSORIASIS
     Dosage: 15 MG, WEEKLY, INTRAVENOUS, 15 MG, WEEKLY, INTRAMUSCULAR
     Route: 042
     Dates: start: 20080215, end: 20080502
  2. AMEVIVE [Suspect]
     Indication: PSORIASIS
     Dosage: 15 MG, WEEKLY, INTRAVENOUS, 15 MG, WEEKLY, INTRAMUSCULAR
     Route: 042
     Dates: start: 20080711
  3. SINGULAIR [Concomitant]
  4. SYMBICORT [Concomitant]
  5. ALUPENT [Concomitant]
  6. PIROXICAM (PIROXICAM OLAMINE) [Concomitant]
  7. METOPROLOL TARTRATE [Concomitant]

REACTIONS (7)
  - CARDIAC FAILURE CONGESTIVE [None]
  - CHRONIC OBSTRUCTIVE PULMONARY DISEASE [None]
  - CORONARY ARTERY DISEASE [None]
  - LEFT VENTRICULAR DYSFUNCTION [None]
  - MITRAL VALVE INCOMPETENCE [None]
  - PNEUMONIA [None]
  - PULMONARY CONGESTION [None]
